FAERS Safety Report 6133089-2 (Version None)
Quarter: 2009Q1

REPORT INFORMATION
  Report Type: 
  Country: None (occurrence: None)
  Receive Date: 20090326
  Receipt Date: 20090325
  Transmission Date: 20090719
  Serious: Yes (Death, Other)
  Sender: FDA-Public Use
  Company Number: US-BIOGENIDEC-2007BI024839

PATIENT
  Age: 58 Year
  Sex: Male
  Weight: 99 kg

DRUGS (7)
  1. TYSABRI [Suspect]
     Indication: MULTIPLE SCLEROSIS
     Route: 042
     Dates: start: 20061226, end: 20071011
  2. AVONEX [Concomitant]
     Indication: MULTIPLE SCLEROSIS
     Route: 030
     Dates: start: 20000701
  3. CLONAZEPAM [Concomitant]
     Indication: PAIN
  4. LYRICA [Concomitant]
     Indication: PAIN
  5. NORCO [Concomitant]
     Indication: PAIN
  6. PAROXETINE HCL [Concomitant]
     Indication: PAIN
  7. ENALAPRIL [Concomitant]
     Indication: HYPERTENSION

REACTIONS (3)
  - DROWNING [None]
  - FATIGUE [None]
  - HEAD INJURY [None]
